FAERS Safety Report 4866908-8 (Version None)
Quarter: 2005Q4

REPORT INFORMATION
  Report Type: 
  Country: None (occurrence: None)
  Receive Date: 20051222
  Receipt Date: 20051209
  Transmission Date: 20060501
  Serious: Yes (Other)
  Sender: FDA-Public Use
  Company Number: 2005167428

PATIENT
  Sex: Female
  Weight: 55 kg

DRUGS (9)
  1. NEURONTIN [Suspect]
     Indication: TRIGEMINAL NEURALGIA
     Dosage: 3200 MG (800 MG, 4 IN 1 D)
  2. EPILIM (VALPROATE SODIUM) [Concomitant]
  3. PARACETAMOL (PARACETAMOL) [Concomitant]
  4. NORTRIPTYLINE (NORTRIPTYLINE) [Concomitant]
  5. OMEPRAZOLE [Concomitant]
  6. MULTIVITAMIN [Concomitant]
  7. VITAMIN C (VITAMIN C) [Concomitant]
  8. OXYBUTYNIN CHLORIDE [Concomitant]
  9. CODILEX (CODEINE, PHENYLTOLOXAMINE) [Concomitant]

REACTIONS (6)
  - ASTHENIA [None]
  - DIFFICULTY IN WALKING [None]
  - DYSPHONIA [None]
  - FATIGUE [None]
  - HYPERSOMNIA [None]
  - SPEECH DISORDER [None]
